FAERS Safety Report 16980205 (Version 2)
Quarter: 2021Q1

REPORT INFORMATION
  Report Type: Spontaneous
  Country: US (occurrence: US)
  Receive Date: 20191031
  Receipt Date: 20210120
  Transmission Date: 20210419
  Serious: No
  Sender: FDA-Public Use
  Company Number: US-PFIZER INC-2019465199

PATIENT
  Age: 59 Year
  Sex: Female

DRUGS (1)
  1. DICLOFENAC EPOLAMINE [Suspect]
     Active Substance: DICLOFENAC EPOLAMINE
     Indication: ANALGESIC THERAPY
     Dosage: UNK

REACTIONS (5)
  - Drug ineffective [Unknown]
  - Product odour abnormal [Unknown]
  - Application site pruritus [Unknown]
  - Product complaint [Unknown]
  - Poor quality product administered [Unknown]
